FAERS Safety Report 4376057-3 (Version None)
Quarter: 2004Q2

REPORT INFORMATION
  Report Type: 
  Country: None (occurrence: None)
  Receive Date: 20040611
  Receipt Date: 20040607
  Transmission Date: 20050107
  Serious: Yes (Life-Threatening, Hospitalization)
  Sender: FDA-Public Use
  Company Number: GB-MERCK-0406GBR00067

PATIENT
  Age: 89 Year
  Sex: Female
  Weight: 60 kg

DRUGS (5)
  1. ASPIRIN [Concomitant]
     Indication: CEREBROVASCULAR ACCIDENT
     Route: 065
  2. DIGOXIN [Concomitant]
     Route: 065
  3. FUROSEMIDE [Concomitant]
     Indication: HYPERTENSION
     Route: 065
     Dates: start: 20020101
  4. LEVOTHYROXINE SODIUM [Concomitant]
     Route: 065
     Dates: start: 19990101
  5. VIOXX [Suspect]
     Indication: PAIN
     Route: 048
     Dates: start: 20040507

REACTIONS (4)
  - GASTROINTESTINAL HAEMORRHAGE [None]
  - HAEMATEMESIS [None]
  - HYPOTENSION [None]
  - MELAENA [None]
